FAERS Safety Report 4417912-5 (Version None)
Quarter: 2004Q3

REPORT INFORMATION
  Report Type: 
  Country: None (occurrence: None)
  Receive Date: 20040803
  Receipt Date: 20040719
  Transmission Date: 20050211
  Serious: Yes (Life-Threatening)
  Sender: FDA-Public Use
  Company Number: CN-2004-029018

PATIENT
  Age: 55 Year
  Sex: Male
  Weight: 50 kg

DRUGS (1)
  1. ULTRAVIST 300 [Suspect]
     Indication: COMPUTERISED TOMOGRAM
     Dosage: 85 ML, INTRAVENOUS
     Route: 042
     Dates: start: 20040715, end: 20040715

REACTIONS (3)
  - CYANOSIS [None]
  - DYSPNOEA [None]
  - FLUSHING [None]
